FAERS Safety Report 7406896-3 (Version None)
Quarter: 2011Q2

REPORT INFORMATION
  Report Type: 
  Country: None (occurrence: None)
  Receive Date: 20110406
  Receipt Date: 20110406
  Transmission Date: 20111010
  Serious: No
  Sender: FDA-Public Use
  Company Number: None

PATIENT
  Sex: Male
  Weight: 74.8435 kg

DRUGS (1)
  1. CRESTOR [Suspect]
     Indication: BLOOD CHOLESTEROL INCREASED
     Dosage: 10MG ONCE A DAY FOR THE LAST MORE THAN 2 YEARS

REACTIONS (10)
  - PRURITUS [None]
  - RESPIRATORY DISORDER [None]
  - AMNESIA [None]
  - SLEEP DISORDER [None]
  - PSORIASIS [None]
  - ECZEMA [None]
  - CHILLS [None]
  - VISION BLURRED [None]
  - OEDEMA PERIPHERAL [None]
  - ARTHRALGIA [None]
